FAERS Safety Report 10048081 (Version 3)
Quarter: 2014Q2

REPORT INFORMATION
  Report Type: Spontaneous
  Country: FR (occurrence: FR)
  Receive Date: 20140331
  Receipt Date: 20140415
  Transmission Date: 20141212
  Serious: Yes (Hospitalization)
  Sender: FDA-Public Use
  Company Number: FR-PFIZER INC-2014087342

PATIENT
  Age: 83 Year
  Sex: Male

DRUGS (12)
  1. INIPOMP [Suspect]
     Dosage: 40 MG, 1X/DAY
     Route: 042
     Dates: start: 20140206
  2. AVLOCARDYL [Suspect]
     Dosage: 1 VIAL PER DAY (5 MG/ML VIAL)
     Route: 042
     Dates: start: 20140207
  3. AVLOCARDYL [Suspect]
     Dosage: 2 VIALS PER DAY
     Route: 042
     Dates: start: 20140212
  4. PERFALGAN [Suspect]
     Dosage: 10MG/ML, 4 G DAILY
     Route: 042
     Dates: start: 20140206
  5. GLUCOSE MONOHYDRATE [Suspect]
     Dosage: UNK
     Route: 042
     Dates: start: 20140206
  6. PERINUTRIFLEX [Suspect]
     Dosage: 1250 ML, DAILY
     Route: 042
     Dates: start: 20140207
  7. SPASFON [Suspect]
     Dosage: 2 VIALS THREE TIMES PER DAY
     Route: 042
     Dates: start: 20140206
  8. LOXEN [Suspect]
     Dosage: UNK
     Route: 042
     Dates: start: 20140210
  9. ASPEGIC [Suspect]
     Dosage: 100 MG, DAILY
     Route: 042
     Dates: start: 20140207
  10. TOPALGIC [Suspect]
     Dosage: 50 MG, 4X/DAY
     Route: 042
     Dates: start: 20140206
  11. ZOPHREN [Concomitant]
     Dosage: UNK
     Route: 042
     Dates: start: 20140207
  12. TRINITRINE [Concomitant]
     Dosage: UNK
     Route: 062
     Dates: start: 20140207

REACTIONS (2)
  - Infusion site induration [Not Recovered/Not Resolved]
  - Infusion site erythema [Not Recovered/Not Resolved]
